FAERS Safety Report 7099723-8 (Version None)
Quarter: 2010Q4

REPORT INFORMATION
  Report Type: 
  Country: None (occurrence: None)
  Receive Date: 20101104
  Receipt Date: 20101021
  Transmission Date: 20110411
  Serious: Yes (Other)
  Sender: FDA-Public Use
  Company Number: ACO_02490_2010

PATIENT
  Sex: Female
  Weight: 58.9676 kg

DRUGS (2)
  1. AMPYRA [Suspect]
     Indication: PRODUCT USED FOR UNKNOWN INDICATION
     Dosage: (10 MG BID ORAL)
     Route: 048
     Dates: start: 20100327, end: 20100410
  2. AVONEX [Concomitant]

REACTIONS (6)
  - ADVERSE DRUG REACTION [None]
  - BALANCE DISORDER [None]
  - CONFUSIONAL STATE [None]
  - DRY MOUTH [None]
  - INSOMNIA [None]
  - OROPHARYNGEAL PAIN [None]
